FAERS Safety Report 17490480 (Version 1)
Quarter: 2020Q1

REPORT INFORMATION
  Report Type: Spontaneous
  Country: US (occurrence: US)
  Receive Date: 20200303
  Receipt Date: 20200303
  Transmission Date: 20200409
  Serious: No
  Sender: FDA-Public Use
  Company Number: US-AKORN PHARMACEUTICALS-2019AKN00589

PATIENT
  Age: 23 Year
  Sex: Female

DRUGS (4)
  1. MYORISAN [Suspect]
     Active Substance: ISOTRETINOIN
     Dosage: 60 MG (AVERAGE DAILY DOSE)
     Dates: start: 20170913
  2. UNSPECIFIED BIRTH CONTROL PILLS [Concomitant]
     Active Substance: UNSPECIFIED INGREDIENT
  3. MYORISAN [Suspect]
     Active Substance: ISOTRETINOIN
     Dosage: 20 MG (TAKEN WITH 40 MG CAPSULE FOR ^AVERAGE DAILY DOSE^ OF 60 MG)
     Dates: start: 20171216, end: 20180225
  4. MYORISAN [Suspect]
     Active Substance: ISOTRETINOIN
     Dosage: 40 MG (TAKEN WITH 20 MG CAPSULE FOR ^AVERAGE DAILY DOSE^ OF 60 MG)
     Dates: start: 20171216, end: 20180225

REACTIONS (1)
  - Drug exposure before pregnancy [Unknown]

NARRATIVE: CASE EVENT DATE: 20190318
